FAERS Safety Report 18630501 (Version 2)
Quarter: 2020Q4

REPORT INFORMATION
  Report Type: Report from Study
  Country: US (occurrence: US)
  Receive Date: 20201217
  Receipt Date: 20201230
  Transmission Date: 20210114
  Serious: No
  Sender: FDA-Public Use
  Company Number: US-SUNOVION-2020SUN003672

PATIENT
  Age: 69 Year
  Sex: Male
  Weight: 78.01 kg

DRUGS (10)
  1. MIRTAZAPINE. [Concomitant]
     Active Substance: MIRTAZAPINE
     Indication: ANXIETY
     Dosage: 15 MG, QD, AT NIGHT, 5 YEARS AGO
  2. MAGNESIUM [Concomitant]
     Active Substance: MAGNESIUM
     Indication: SUPPLEMENTATION THERAPY
     Dosage: UNK, QD, 15 YEARS AGO
  3. B6+B12 WITH FOLIC ACID [Concomitant]
     Indication: SUPPLEMENTATION THERAPY
     Dosage: UNK, QD, ABOUT 8 YEARS AGO
  4. TIGAN [Concomitant]
     Active Substance: TRIMETHOBENZAMIDE HYDROCHLORIDE
     Indication: NAUSEA
  5. MIRTAZAPINE. [Concomitant]
     Active Substance: MIRTAZAPINE
     Indication: DEPRESSION
  6. MIRTAZAPINE. [Concomitant]
     Active Substance: MIRTAZAPINE
     Indication: SLEEP DISORDER
  7. GOCOVRI [Concomitant]
     Active Substance: AMANTADINE
     Indication: DYSKINESIA
     Dosage: 137 MG, QD, AT NIGHT, 3 YEARS AGO
  8. KYNMOBI [Suspect]
     Active Substance: APOMORPHINE HYDROCHLORIDE
     Indication: PARKINSON^S DISEASE
     Dosage: 10 MG
     Route: 060
     Dates: start: 20201202
  9. VITAMIN D [Concomitant]
     Active Substance: VITAMIN D NOS
     Indication: SUPPLEMENTATION THERAPY
     Dosage: UNK, QD, 15 YEARS AGO
  10. RYTARY [Concomitant]
     Active Substance: CARBIDOPA\LEVODOPA
     Indication: PARKINSON^S DISEASE
     Dosage: 3 DF, TID (48.75MG/195MG), 5 YEARS AGO

REACTIONS (7)
  - Presyncope [Recovered/Resolved]
  - Nausea [Recovered/Resolved]
  - Chills [Recovered/Resolved]
  - Cold sweat [Recovered/Resolved]
  - Feeling abnormal [Recovered/Resolved]
  - Hyperhidrosis [Recovered/Resolved]
  - Dizziness [Recovered/Resolved]

NARRATIVE: CASE EVENT DATE: 20201202
